FAERS Safety Report 19856998 (Version 1)
Quarter: 2021Q3

REPORT INFORMATION
  Report Type: Spontaneous
  Country: CN (occurrence: CN)
  Receive Date: 20210920
  Receipt Date: 20210920
  Transmission Date: 20211014
  Serious: Yes (Hospitalization)
  Sender: FDA-Public Use
  Company Number: CN-BAXTER-2021BAX024395

PATIENT
  Age: 58 Year
  Sex: Female
  Weight: 58 kg

DRUGS (4)
  1. 0.9% SODIUM CHLORIDE INJECTION [Suspect]
     Active Substance: SODIUM CHLORIDE
     Indication: MEDICATION DILUTION
     Dosage: CYCLOPHOSPHAMIDE 0.9G + 0.9% SODIUM CHLORIDE 50ML
     Route: 041
     Dates: start: 20210320, end: 20210320
  2. ENDOXAN [Suspect]
     Active Substance: CYCLOPHOSPHAMIDE
     Indication: BREAST CANCER FEMALE
     Dosage: CYCLOPHOSPHAMIDE 0.9G + 0.9% SODIUM CHLORIDE 50ML
     Route: 041
     Dates: start: 20210320, end: 20210320
  3. 0.9% SODIUM CHLORIDE INJECTION [Suspect]
     Active Substance: SODIUM CHLORIDE
     Dosage: DOCETAXEL 120 MG + 0.9% SODIUM CHLORIDE 250ML
     Route: 041
     Dates: start: 20210320, end: 20210320
  4. DOCETAXEL. [Suspect]
     Active Substance: DOCETAXEL
     Indication: BREAST CANCER FEMALE
     Dosage: DOCETAXEL 120 MG + 0.9% SODIUM CHLORIDE 250ML
     Route: 041
     Dates: start: 20210320, end: 20210320

REACTIONS (1)
  - Myelosuppression [Recovered/Resolved]

NARRATIVE: CASE EVENT DATE: 20210326
